FAERS Safety Report 9957799 (Version 1)
Quarter: 2014Q1

REPORT INFORMATION
  Report Type: Report from Study
  Country: US (occurrence: US)
  Receive Date: 20140304
  Receipt Date: 20140304
  Transmission Date: 20141002
  Serious: No
  Sender: FDA-Public Use
  Company Number: US-ABBVIE-13P-163-1092139-00

PATIENT
  Age: 59 Year
  Sex: Male

DRUGS (11)
  1. HUMIRA [Suspect]
     Indication: CROHN^S DISEASE
     Dates: start: 201302
  2. ASACOL [Concomitant]
     Indication: CROHN^S DISEASE
  3. ASACOL [Concomitant]
     Indication: INFLAMMATORY BOWEL DISEASE
  4. VALSARTAN HCT [Concomitant]
     Indication: HYPERTENSION
     Dosage: 320/25MG ONCE DAILY
  5. ALPRAZOLAM [Concomitant]
     Indication: ANXIETY
  6. RANITIDINE [Concomitant]
     Indication: GASTROOESOPHAGEAL REFLUX DISEASE
     Dosage: ABOUT ONCE A WEEK
  7. SYMBICORT [Concomitant]
     Indication: ASTHMA
     Dosage: INHALER
  8. DOCUSATE SODIUM [Concomitant]
     Indication: PRODUCT USED FOR UNKNOWN INDICATION
     Dosage: 2 PILLS EVERY NIGHT BEFORE BED
  9. SORIATANE [Concomitant]
     Indication: DERMATITIS CONTACT
  10. TYLENOL EXTRA STRENGTH [Concomitant]
     Indication: PAIN
  11. ADVIL [Concomitant]
     Indication: PAIN

REACTIONS (7)
  - Injection site bruising [Not Recovered/Not Resolved]
  - Frequent bowel movements [Not Recovered/Not Resolved]
  - Inflammatory bowel disease [Not Recovered/Not Resolved]
  - Large intestine polyp [Not Recovered/Not Resolved]
  - Large intestine polyp [Not Recovered/Not Resolved]
  - Large intestine polyp [Not Recovered/Not Resolved]
  - Injection site pain [Not Recovered/Not Resolved]
